FAERS Safety Report 17613242 (Version 3)
Quarter: 2020Q2

REPORT INFORMATION
  Report Type: Report from Study
  Country: CO (occurrence: CO)
  Receive Date: 20200402
  Receipt Date: 20200624
  Transmission Date: 20200713
  Serious: Yes (Death, Hospitalization, Other)
  Sender: FDA-Public Use
  Company Number: CO-BRISTOL-MYERS SQUIBB COMPANY-BMS-2019-090704

PATIENT
  Age: 63 Year
  Sex: Female

DRUGS (3)
  1. NIVOLUMAB [Suspect]
     Active Substance: NIVOLUMAB
     Indication: LUNG NEOPLASM MALIGNANT
     Dosage: 150 MILLIGRAM, Q2WK
     Route: 042
     Dates: start: 20190607
  2. NIVOLUMAB [Suspect]
     Active Substance: NIVOLUMAB
     Indication: MALIGNANT MELANOMA
     Dosage: 100 MILLIGRAM, Q2WK
     Route: 042
  3. BISACODYL. [Concomitant]
     Active Substance: BISACODYL
     Indication: CONSTIPATION
     Route: 065

REACTIONS (17)
  - Dyspnoea [Recovering/Resolving]
  - Gastrointestinal pain [Unknown]
  - Throat irritation [Recovering/Resolving]
  - Pain in extremity [Recovering/Resolving]
  - Fatigue [Unknown]
  - Nausea [Recovered/Resolved]
  - Headache [Recovered/Resolved]
  - Gastrointestinal disorder [Unknown]
  - Asthenia [Recovered/Resolved]
  - Abdominal pain upper [Recovered/Resolved]
  - Constipation [Recovering/Resolving]
  - Weight decreased [Recovering/Resolving]
  - Depression [Recovered/Resolved]
  - Nasopharyngitis [Recovering/Resolving]
  - Pneumonia [Recovering/Resolving]
  - Cachexia [Recovering/Resolving]
  - Dysphonia [Recovering/Resolving]

NARRATIVE: CASE EVENT DATE: 20190901
